FAERS Safety Report 19565028 (Version 1)
Quarter: 2021Q3

REPORT INFORMATION
  Report Type: Spontaneous
  Country: FR (occurrence: FR)
  Receive Date: 20210715
  Receipt Date: 20210715
  Transmission Date: 20211014
  Serious: Yes (Death)
  Sender: FDA-Public Use
  Company Number: NVSC2021FR158904

PATIENT
  Age: 97 Year
  Sex: Male

DRUGS (1)
  1. ENTRESTO [Suspect]
     Active Substance: SACUBITRIL\VALSARTAN
     Indication: CARDIAC FAILURE
     Dosage: 50 MG, (24/26 MG), QD (STARTED ON MID JUN 2021)
     Route: 065
     Dates: start: 202106

REACTIONS (2)
  - Off label use [Unknown]
  - General physical health deterioration [Fatal]
